FAERS Safety Report 6809820-7 (Version None)
Quarter: 2010Q2

REPORT INFORMATION
  Report Type: 
  Country: None (occurrence: None)
  Receive Date: 20100630
  Receipt Date: 20100621
  Transmission Date: 20101027
  Serious: Yes (Other)
  Sender: FDA-Public Use
  Company Number: US-JNJFOC-20100301940

PATIENT
  Sex: Male

DRUGS (5)
  1. LEVAQUIN [Suspect]
     Indication: PNEUMONIA
     Route: 048
  2. LEVAQUIN [Suspect]
     Indication: SINUSITIS
     Route: 048
  3. LEVAQUIN [Suspect]
     Indication: LOCALISED INFECTION
     Route: 048
  4. PREDNISONE [Suspect]
     Indication: ANTIINFLAMMATORY THERAPY
     Route: 065
  5. METHYLPREDNISOLONE [Suspect]
     Indication: ANTIINFLAMMATORY THERAPY
     Route: 065

REACTIONS (3)
  - TENDON RUPTURE [None]
  - TENDONITIS [None]
  - TENOSYNOVITIS [None]
